FAERS Safety Report 4346255-3 (Version None)
Quarter: 2004Q1

REPORT INFORMATION
  Report Type: 
  Country: None (occurrence: None)
  Receive Date: 20040325
  Receipt Date: 20031216
  Transmission Date: 20041129
  Serious: No
  Sender: FDA-Public Use
  Company Number: USA030947336

PATIENT
  Age: 77 Year
  Sex: Female

DRUGS (2)
  1. FORTEO [Suspect]
     Indication: OSTEOPOROSIS
     Dates: start: 20030825
  2. CALCIUM [Concomitant]

REACTIONS (6)
  - ASTHENIA [None]
  - ASTHMA [None]
  - HYPERHIDROSIS [None]
  - NASOPHARYNGITIS [None]
  - NAUSEA [None]
  - PALPITATIONS [None]
